FAERS Safety Report 17280891 (Version 1)
Quarter: 2020Q1

REPORT INFORMATION
  Report Type: Spontaneous
  Country: US (occurrence: US)
  Receive Date: 20200117
  Receipt Date: 20200117
  Transmission Date: 20200409
  Serious: No
  Sender: FDA-Public Use
  Company Number: US-ELI_LILLY_AND_COMPANY-US202001002596

PATIENT
  Age: 64 Year
  Sex: Female

DRUGS (4)
  1. ALLEVESS [Concomitant]
     Active Substance: CAPSAICIN\MENTHOL
     Indication: PRODUCT USED FOR UNKNOWN INDICATION
  2. TALTZ [Suspect]
     Active Substance: IXEKIZUMAB
     Indication: PSORIASIS
     Dosage: 80 MG, MONTHLY (1/M)
     Route: 058
  3. VICKS DAYQUIL [Concomitant]
     Active Substance: DEXTROMETHORPHAN HYDROBROMIDE\GUAIFENESIN
     Indication: PRODUCT USED FOR UNKNOWN INDICATION
  4. TALTZ [Suspect]
     Active Substance: IXEKIZUMAB
     Indication: PSORIATIC ARTHROPATHY

REACTIONS (5)
  - Bone pain [Unknown]
  - Abdominal discomfort [Unknown]
  - Sinus congestion [Unknown]
  - Influenza like illness [Unknown]
  - Nasopharyngitis [Unknown]
